FAERS Safety Report 8322523-5 (Version None)
Quarter: 2012Q2

REPORT INFORMATION
  Report Type: 
  Country: None (occurrence: None)
  Receive Date: 20120430
  Receipt Date: 20120222
  Transmission Date: 20120825
  Serious: Yes (Hospitalization)
  Sender: FDA-Public Use
  Company Number: CH-ASTRAZENECA-2012SE12172

PATIENT
  Age: 83 Year
  Sex: Male

DRUGS (5)
  1. TENORMIN [Suspect]
     Route: 048
     Dates: end: 20111012
  2. GLIMEPIRID [Concomitant]
     Route: 048
  3. METFORMIN HCL [Concomitant]
     Route: 048
  4. GALANTAMINE HYDROBROMIDE [Concomitant]
  5. RAMIPRIL [Concomitant]
     Route: 048

REACTIONS (2)
  - BRADYCARDIA [None]
  - PRESYNCOPE [None]
